APPROVED DRUG PRODUCT: CLINDAMYCIN PHOSPHATE
Active Ingredient: CLINDAMYCIN PHOSPHATE
Strength: EQ 150MG BASE/ML
Dosage Form/Route: INJECTABLE;INJECTION
Application: A063079 | Product #001
Applicant: WATSON LABORATORIES INC
Approved: Mar 5, 1990 | RLD: No | RS: No | Type: DISCN